FAERS Safety Report 7865509-7 (Version None)
Quarter: 2011Q4

REPORT INFORMATION
  Report Type: 
  Country: None (occurrence: None)
  Receive Date: 20111028
  Receipt Date: 20110110
  Transmission Date: 20120403
  Serious: No
  Sender: FDA-Public Use
  Company Number: US-GLAXOSMITHKLINE-A0904959A

PATIENT
  Age: 64 Year

DRUGS (2)
  1. NO CONCURRENT MEDICATION [Concomitant]
  2. ADVAIR DISKUS 100/50 [Suspect]
     Indication: OROPHARYNGEAL PAIN
     Route: 055
     Dates: start: 20090101

REACTIONS (3)
  - HEADACHE [None]
  - COUGH [None]
  - NASOPHARYNGITIS [None]
